FAERS Safety Report 7796119-8 (Version None)
Quarter: 2011Q4

REPORT INFORMATION
  Report Type: 
  Country: None (occurrence: None)
  Receive Date: 20111004
  Receipt Date: 20110928
  Transmission Date: 20120403
  Serious: Yes (Hospitalization, Other)
  Sender: FDA-Public Use
  Company Number: AU-AMGEN-AUSSP2011023904

PATIENT
  Age: 54 Year
  Sex: Female

DRUGS (8)
  1. ZIMSTAT [Concomitant]
     Dosage: 100 MG, UNK
     Route: 048
  2. NPLATE [Suspect]
     Dosage: 75 MUG, QWK
     Dates: start: 20110308
  3. MICARDIS [Concomitant]
     Dosage: 40 MG, UNK
     Route: 048
  4. AMLODIPINE BESYLATE [Concomitant]
     Dosage: 5 MG, UNK
     Route: 048
  5. PANTOPRAZOLE [Concomitant]
     Dosage: 40 MG, UNK
     Route: 048
  6. TAZAC [Concomitant]
     Dosage: 150 MG, BID
     Route: 048
  7. NPLATE [Suspect]
     Dosage: 70 MUG, QWK
     Route: 058
     Dates: start: 20110307, end: 20110512
  8. NPLATE [Suspect]
     Indication: IDIOPATHIC THROMBOCYTOPENIC PURPURA
     Dosage: 2 MUG/KG, UNK

REACTIONS (4)
  - RASH MACULO-PAPULAR [None]
  - IDIOPATHIC THROMBOCYTOPENIC PURPURA [None]
  - PLATELET COUNT DECREASED [None]
  - HEPATOCELLULAR INJURY [None]
